FAERS Safety Report 5942884-1 (Version None)
Quarter: 2008Q4

REPORT INFORMATION
  Report Type: 
  Country: None (occurrence: None)
  Receive Date: 20081106
  Receipt Date: 20081031
  Transmission Date: 20090506
  Serious: Yes (Hospitalization)
  Sender: FDA-Public Use
  Company Number: DE-BAYER-DE-2007-026998

PATIENT
  Age: 25 Year
  Sex: Female

DRUGS (3)
  1. MIRENA [Suspect]
     Indication: DRUG USE FOR UNKNOWN INDICATION
     Route: 015
     Dates: start: 20060712, end: 20071129
  2. VALETTE [Suspect]
     Indication: DRUG USE FOR UNKNOWN INDICATION
     Dosage: TOTAL DAILY DOSE: 1 DF
     Route: 048
     Dates: start: 20071129
  3. MIRENA [Suspect]
     Route: 015
     Dates: start: 20080313

REACTIONS (4)
  - ABDOMINAL PAIN LOWER [None]
  - AMENORRHOEA [None]
  - HYDROMETRA [None]
  - METRORRHAGIA [None]
